FAERS Safety Report 14818554 (Version 1)
Quarter: 2018Q2

REPORT INFORMATION
  Report Type: Spontaneous
  Country: JP (occurrence: JP)
  Receive Date: 20180427
  Receipt Date: 20180427
  Transmission Date: 20180711
  Serious: No
  Sender: FDA-Public Use
  Company Number: JP-REGULIS-2046698

PATIENT
  Age: 53 Year
  Sex: Male

DRUGS (3)
  1. INDOCYANINE GREEN. [Concomitant]
     Active Substance: INDOCYANINE GREEN
  2. PROVAYBLUE [Suspect]
     Active Substance: METHYLENE BLUE
     Indication: PARATHYROIDECTOMY
     Route: 042
  3. INDIGO CARMINE [Concomitant]
     Active Substance: INDIGOTINDISULFONATE SODIUM

REACTIONS (2)
  - Off label use [Unknown]
  - Chromaturia [Unknown]
